FAERS Safety Report 6908285-4 (Version None)
Quarter: 2010Q3

REPORT INFORMATION
  Report Type: 
  Country: None (occurrence: None)
  Receive Date: 20100805
  Receipt Date: 20100728
  Transmission Date: 20110219
  Serious: Yes (Hospitalization)
  Sender: FDA-Public Use
  Company Number: DE-ROCHE-717814

PATIENT
  Sex: Male

DRUGS (5)
  1. PEGINTERFERON ALFA-2A [Suspect]
     Dosage: STRENGTH: 180UG/ML
     Route: 058
     Dates: start: 20091116, end: 20100221
  2. PEGINTERFERON ALFA-2A [Suspect]
     Dosage: DOSE REDUCED; STRENGTH: 180 MG/ML
     Route: 058
     Dates: start: 20100222, end: 20100503
  3. RIBAVIRIN [Suspect]
     Route: 048
     Dates: start: 20091116, end: 20100221
  4. RIBAVIRIN [Suspect]
     Route: 048
     Dates: start: 20100222, end: 20100503
  5. BLINDED BI 201335 NA [Suspect]
     Route: 048
     Dates: start: 20091119, end: 20100215

REACTIONS (1)
  - MYOCARDITIS [None]
